FAERS Safety Report 13864685 (Version 1)
Quarter: 2017Q3

REPORT INFORMATION
  Report Type: Spontaneous
  Country: US (occurrence: US)
  Receive Date: 20170813
  Receipt Date: 20170813
  Transmission Date: 20171127
  Serious: Yes (Other)
  Sender: FDA-Public Use
  Company Number: None

PATIENT
  Age: 47 Year
  Sex: Female
  Weight: 53 kg

DRUGS (5)
  1. MULTI VIT [Concomitant]
  2. LORAZAPAM [Concomitant]
     Active Substance: LORAZEPAM
  3. ZOLOFT [Suspect]
     Active Substance: SERTRALINE HYDROCHLORIDE
     Indication: MAJOR DEPRESSION
     Dosage: ?          QUANTITY:1 TABLET(S);?
     Route: 048
  4. GENERIC SERTRALIN [Concomitant]
  5. OMNEPRIZOL [Concomitant]

REACTIONS (3)
  - Reaction to excipient [None]
  - Product colour issue [None]
  - Feeling abnormal [None]

NARRATIVE: CASE EVENT DATE: 20170813
